FAERS Safety Report 20338064 (Version 3)
Quarter: 2024Q3

REPORT INFORMATION
  Report Type: Spontaneous
  Country: JP (occurrence: JP)
  Receive Date: 20220115
  Receipt Date: 20240809
  Transmission Date: 20241017
  Serious: Yes (Death, Other)
  Sender: UNITED THERAPEUTICS
  Company Number: JP-UNITED THERAPEUTICS-UNT-2022-000842

PATIENT
  Age: 6 Year
  Sex: Male
  Weight: 17.2 kg

DRUGS (7)
  1. UNITUXIN [Suspect]
     Active Substance: DINUTUXIMAB
     Indication: Neuroblastoma recurrent
     Dosage: 17.5 MG/M2, CYCLICAL (CYCLE 1)
     Route: 041
     Dates: start: 20211206, end: 20211209
  2. FILGRASTIM [Concomitant]
     Active Substance: FILGRASTIM
     Indication: Neuroblastoma recurrent
     Dosage: 5 ?G/KG, QD
     Dates: start: 20211203, end: 20211216
  3. TECELEUKIN [Concomitant]
     Active Substance: TECELEUKIN
     Indication: Product used for unknown indication
     Dosage: UNK
  4. HYDROXYZINE [Concomitant]
     Active Substance: HYDROXYZINE HYDROCHLORIDE
     Indication: Prophylaxis
     Dosage: UNK
     Dates: start: 20211206, end: 20211210
  5. ACETAMINOPHEN [Concomitant]
     Active Substance: ACETAMINOPHEN
     Indication: Antipyresis
     Dosage: UNK
     Dates: start: 20211206, end: 20211213
  6. FUROSEMIDE [Concomitant]
     Active Substance: FUROSEMIDE
     Indication: Prophylaxis
     Dosage: UNK
     Dates: start: 20211206, end: 20211212
  7. MORPHINE HYDROCHLORIDE [Concomitant]
     Active Substance: MORPHINE HYDROCHLORIDE
     Indication: Prophylaxis
     Dosage: UNK

REACTIONS (3)
  - Neuroblastoma recurrent [Fatal]
  - Ascites [Not Recovered/Not Resolved]
  - Pyrexia [Recovered/Resolved]

NARRATIVE: CASE EVENT DATE: 20211206
